FAERS Safety Report 5009417-8 (Version None)
Quarter: 2006Q2

REPORT INFORMATION
  Report Type: 
  Country: None (occurrence: None)
  Receive Date: 20060524
  Receipt Date: 20060523
  Transmission Date: 20061013
  Serious: Yes (Hospitalization)
  Sender: FDA-Public Use
  Company Number: SE-RB-3336-2006

PATIENT
  Age: 30 Year
  Sex: Male

DRUGS (2)
  1. BUPRENORPHINE HCL [Suspect]
     Route: 060
     Dates: start: 20060101, end: 20060401
  2. BUPRENORPHINE HCL [Suspect]
     Route: 060
     Dates: start: 20060401

REACTIONS (1)
  - DELUSIONAL DISORDER, PERSECUTORY TYPE [None]
